FAERS Safety Report 23226908 (Version 3)
Quarter: 2023Q4

REPORT INFORMATION
  Report Type: Spontaneous
  Country: US (occurrence: US)
  Receive Date: 20231124
  Receipt Date: 20231208
  Transmission Date: 20240110
  Serious: Yes (Hospitalization, Other)
  Sender: FDA-Public Use
  Company Number: US-PFM-2023-04964

PATIENT
  Sex: Male
  Weight: 5.08 kg

DRUGS (2)
  1. HEMANGEOL [Suspect]
     Active Substance: PROPRANOLOL HYDROCHLORIDE
     Indication: Haemangioma
     Dosage: 0.5 ML, BID (2/DAY)
     Route: 048
     Dates: start: 20230828
  2. HEMANGEOL [Suspect]
     Active Substance: PROPRANOLOL HYDROCHLORIDE
     Dosage: 1.3 ML, UNK
     Route: 065

REACTIONS (7)
  - Unresponsive to stimuli [Recovered/Resolved]
  - Hyperhidrosis [Recovered/Resolved]
  - Lethargy [Recovered/Resolved]
  - Upper respiratory tract infection [Unknown]
  - Somnolence [Recovered/Resolved]
  - Heart rate decreased [Recovering/Resolving]
  - Hypotension [Recovered/Resolved]
